FAERS Safety Report 24946371 (Version 1)
Quarter: 2025Q1

REPORT INFORMATION
  Report Type: Spontaneous
  Country: US (occurrence: US)
  Receive Date: 20250210
  Receipt Date: 20250210
  Transmission Date: 20250409
  Serious: Yes (Other)
  Sender: NOVO NORDISK
  Company Number: US-NOVOPROD-1363122

PATIENT
  Age: 58 Year
  Sex: Female

DRUGS (4)
  1. WEGOVY [Suspect]
     Active Substance: SEMAGLUTIDE
     Indication: Weight control
     Dosage: 1.7 MG, QW
     Route: 058
     Dates: start: 2024, end: 202501
  2. WELLBUTRIN [Concomitant]
     Active Substance: BUPROPION HYDROCHLORIDE
     Indication: Weight control
  3. PHENTERMINE [Concomitant]
     Active Substance: PHENTERMINE
     Indication: Depression
  4. PHENTERMINE [Concomitant]
     Active Substance: PHENTERMINE
     Indication: Weight control

REACTIONS (9)
  - Tenosynovitis stenosans [Not Recovered/Not Resolved]
  - Blepharoplasty [Not Recovered/Not Resolved]
  - Canthoplasty [Not Recovered/Not Resolved]
  - Scar excision [Not Recovered/Not Resolved]
  - Flap surgery [Not Recovered/Not Resolved]
  - Blood pressure fluctuation [Unknown]
  - Depression [Unknown]
  - Nausea [Recovered/Resolved]
  - Fatigue [Recovered/Resolved]

NARRATIVE: CASE EVENT DATE: 20240101
